FAERS Safety Report 10605848 (Version 1)
Quarter: 2014Q4

REPORT INFORMATION
  Report Type: Spontaneous
  Country: US (occurrence: None)
  Receive Date: 20141121
  Receipt Date: 20141121
  Transmission Date: 20150529
  Serious: Yes (Death, Life-Threatening)
  Sender: FDA-Public Use
  Company Number: 201410000438

PATIENT
  Sex: Female

DRUGS (2)
  1. INOMAX [Suspect]
     Active Substance: NITRIC OXIDE
     Indication: CARDIAC OPERATION
     Dosage: 20 PPM, CONTINOUS, INHALATION
     Route: 055
     Dates: start: 201407, end: 201407
  2. INOMAX [Suspect]
     Active Substance: NITRIC OXIDE
     Indication: PULMONARY ARTERIAL PRESSURE INCREASED
     Dosage: 20 PPM, CONTINOUS, INHALATION
     Route: 055
     Dates: start: 201407, end: 201407

REACTIONS (3)
  - Off label use [None]
  - General physical health deterioration [None]
  - Procedural haemorrhage [None]

NARRATIVE: CASE EVENT DATE: 201407
